FAERS Safety Report 7897238-8 (Version None)
Quarter: 2011Q4

REPORT INFORMATION
  Report Type: 
  Country: None (occurrence: None)
  Receive Date: 20111107
  Receipt Date: 20111028
  Transmission Date: 20120403
  Serious: Yes (Hospitalization, Other)
  Sender: FDA-Public Use
  Company Number: KR-ELI_LILLY_AND_COMPANY-KR201106006991

PATIENT
  Age: 28 Year
  Sex: Female
  Weight: 53 kg

DRUGS (3)
  1. HUMALOG MIX 75/25 [Suspect]
     Dosage: 28 U, QD
     Route: 058
     Dates: start: 20110401
  2. HUMALOG MIX 75/25 [Suspect]
     Dosage: 28 U, EACH EVENING
     Route: 058
     Dates: start: 20110401
  3. HUMALOG MIX 75/25 [Suspect]
     Indication: DIABETES MELLITUS
     Dosage: 26 U, EACH MORNING
     Route: 058
     Dates: start: 20110401

REACTIONS (3)
  - BLOOD TEST ABNORMAL [None]
  - GASTRIC HAEMORRHAGE [None]
  - ANAEMIA [None]
